FAERS Safety Report 7482501-5 (Version None)
Quarter: 2011Q2

REPORT INFORMATION
  Report Type: 
  Country: None (occurrence: None)
  Receive Date: 20110516
  Receipt Date: 20110506
  Transmission Date: 20111010
  Serious: Yes (Hospitalization, Other)
  Sender: FDA-Public Use
  Company Number: DE-ASTRAZENECA-2011SE26495

PATIENT
  Age: 63 Year
  Sex: Male
  Weight: 90 kg

DRUGS (9)
  1. ROXI [Suspect]
     Indication: PYREXIA
     Route: 048
     Dates: start: 20101227, end: 20110102
  2. L-THYROXIN, 175 G, TABL, NN [Concomitant]
     Route: 048
     Dates: start: 19950101
  3. BISOPROLOL, 5 MG, TABL, NN [Concomitant]
     Route: 048
     Dates: start: 19970101
  4. ROXI [Suspect]
     Indication: DYSURIA
     Route: 048
     Dates: start: 20101227, end: 20110102
  5. RAMIPRIL, 10 MG, TABL, NN [Concomitant]
     Route: 048
     Dates: start: 19950101
  6. SIMVASTATIN, 20 MG, TABL, NN [Concomitant]
     Route: 048
     Dates: start: 20030101
  7. ROXI [Suspect]
     Indication: POLLAKIURIA
     Route: 048
     Dates: start: 20101227, end: 20110102
  8. OMEPRAZOLE [Suspect]
     Indication: ABDOMINAL PAIN
     Dosage: 1X 20 MG DAILY PER OS
     Route: 048
     Dates: start: 20101209, end: 20101223
  9. METFORMIN, 500 MG, TABL, NN [Concomitant]
     Route: 048
     Dates: start: 20080101

REACTIONS (1)
  - HEPATITIS ACUTE [None]
